FAERS Safety Report 24603629 (Version 1)
Quarter: 2024Q4

REPORT INFORMATION
  Report Type: Spontaneous
  Country: AU (occurrence: AU)
  Receive Date: 20241111
  Receipt Date: 20241111
  Transmission Date: 20250114
  Serious: Yes (Other)
  Sender: ADVANZ PHARMA
  Company Number: AU-ADVANZ PHARMA-202411009100

PATIENT

DRUGS (7)
  1. ZONISAMIDE [Suspect]
     Active Substance: ZONISAMIDE
  2. PHENYTOIN [Suspect]
     Active Substance: PHENYTOIN
  3. CLOBAZAM [Suspect]
     Active Substance: CLOBAZAM
  4. LACOSAMIDE [Suspect]
     Active Substance: LACOSAMIDE
  5. LAMOTRIGINE [Suspect]
     Active Substance: LAMOTRIGINE
  6. LEVETIRACETAM [Suspect]
     Active Substance: LEVETIRACETAM
  7. PHENOBARBITAL [Suspect]
     Active Substance: PHENOBARBITAL

REACTIONS (2)
  - Foetal malformation [Unknown]
  - Foetal exposure during pregnancy [Unknown]
